FAERS Safety Report 16833850 (Version 1)
Quarter: 2019Q3

REPORT INFORMATION
  Report Type: Spontaneous
  Country: US (occurrence: US)
  Receive Date: 20190920
  Receipt Date: 20190920
  Transmission Date: 20191005
  Serious: No
  Sender: FDA-Public Use
  Company Number: US-PFIZER INC-2019401109

PATIENT
  Age: 80 Year
  Sex: Female

DRUGS (1)
  1. XELJANZ [Suspect]
     Active Substance: TOFACITINIB CITRATE
     Dosage: 5 MG, UNK
     Dates: start: 20190716, end: 20190913

REACTIONS (5)
  - Limb discomfort [Unknown]
  - Restlessness [Unknown]
  - Pain [Unknown]
  - Pollakiuria [Unknown]
  - Insomnia [Unknown]
